FAERS Safety Report 14661390 (Version 6)
Quarter: 2018Q2

REPORT INFORMATION
  Report Type: Spontaneous
  Country: IT (occurrence: IT)
  Receive Date: 20180320
  Receipt Date: 20180618
  Transmission Date: 20180711
  Serious: Yes (Hospitalization, Other)
  Sender: FDA-Public Use
  Company Number: IT-AUROBINDO-AUR-APL-2018-014552

PATIENT
  Age: 51 Year
  Sex: Female

DRUGS (4)
  1. QUETIAPINE FILM-COATED TABLET [Suspect]
     Active Substance: QUETIAPINE
     Indication: SELF-INJURIOUS IDEATION
     Dosage: 60 DF, ONCE; IN TOTAL
     Route: 048
     Dates: start: 20170805, end: 20170805
  2. AERIUS [Suspect]
     Active Substance: DESLORATADINE
     Indication: SELF-INJURIOUS IDEATION
     Dosage: 3 DF, ONCE; IN TOTAL
     Route: 048
     Dates: start: 20170805, end: 20170805
  3. VENLAFAXINE PROLONGED-RELEASE CAPSULE, HARD [Suspect]
     Active Substance: VENLAFAXINE HYDROCHLORIDE
     Indication: SELF-INJURIOUS IDEATION
     Dosage: 5 DF, ONCE; IN TOTAL
     Route: 048
     Dates: start: 20170805, end: 20170805
  4. CETIRIZINE HYDROCHLORIDE W/PSEUDOEPHEDRINE [Suspect]
     Active Substance: CETIRIZINE HYDROCHLORIDE\PSEUDOEPHEDRINE HYDROCHLORIDE
     Indication: SELF-INJURIOUS IDEATION
     Dosage: 12 DF, ONCE; IN TOTAL
     Route: 048
     Dates: start: 20170805, end: 20170805

REACTIONS (4)
  - Self-injurious ideation [Recovered/Resolved]
  - Drug abuse [Recovered/Resolved]
  - Coma [Recovered/Resolved]
  - Intentional overdose [Unknown]

NARRATIVE: CASE EVENT DATE: 20170805
